FAERS Safety Report 8399555-4 (Version None)
Quarter: 2012Q2

REPORT INFORMATION
  Report Type: 
  Country: None (occurrence: None)
  Receive Date: 20120531
  Receipt Date: 20120525
  Transmission Date: 20120825
  Serious: Yes (Hospitalization, Disabling, Other)
  Sender: FDA-Public Use
  Company Number: FR-MERCK-1204FRA00123

PATIENT
  Sex: Female

DRUGS (1)
  1. FOSAMAX PLUS D [Suspect]
     Indication: OSTEOPOROSIS
     Route: 048

REACTIONS (4)
  - OSTEONECROSIS OF JAW [None]
  - MUSCULOSKELETAL PAIN [None]
  - FOOT DEFORMITY [None]
  - ARTHRALGIA [None]
